FAERS Safety Report 14542747 (Version 1)
Quarter: 2018Q1

REPORT INFORMATION
  Report Type: Spontaneous
  Country: IE (occurrence: IE)
  Receive Date: 20180216
  Receipt Date: 20180216
  Transmission Date: 20180509
  Serious: Yes (Other)
  Sender: FDA-Public Use
  Company Number: IE-OTSUKA-DJ201305788

PATIENT
  Age: 15 Year
  Sex: Female

DRUGS (5)
  1. ABILIFY [Suspect]
     Active Substance: ARIPIPRAZOLE
     Indication: MAJOR DEPRESSION
     Dosage: 12.5 MG, UNK
     Route: 048
     Dates: start: 20130726
  2. PROCYCLIDINE [Concomitant]
     Active Substance: PROCYCLIDINE
     Indication: MAJOR DEPRESSION
     Dosage: 2.5 MG, UNK
     Route: 065
  3. QUETIAPINE. [Suspect]
     Active Substance: QUETIAPINE
     Indication: MAJOR DEPRESSION
     Dosage: 800 MG, QD
     Route: 065
  4. OLANZAPINE. [Suspect]
     Active Substance: OLANZAPINE
     Indication: MAJOR DEPRESSION
     Dosage: 20 MG, UNK
     Route: 065
  5. VENLAFAXINE HCL [Concomitant]
     Active Substance: VENLAFAXINE HYDROCHLORIDE
     Indication: MAJOR DEPRESSION
     Dosage: UNK
     Route: 065

REACTIONS (7)
  - Urinary retention [Recovered/Resolved]
  - Constipation [Recovered/Resolved]
  - Extrapyramidal disorder [Recovering/Resolving]
  - Formication [Unknown]
  - Akathisia [Not Recovered/Not Resolved]
  - Off label use [Unknown]
  - Agitation [Recovering/Resolving]

NARRATIVE: CASE EVENT DATE: 20130823
